FAERS Safety Report 17352163 (Version 1)
Quarter: 2020Q1

REPORT INFORMATION
  Report Type: Spontaneous
  Country: CA (occurrence: CA)
  Receive Date: 20200130
  Receipt Date: 20200130
  Transmission Date: 20200409
  Serious: Yes (Hospitalization)
  Sender: FDA-Public Use
  Company Number: CA-CIPHER-2020-CA-000077

PATIENT
  Age: 56 Year
  Sex: Female

DRUGS (10)
  1. TRAMADOL HYDROCHLORIDE. [Suspect]
     Active Substance: TRAMADOL HYDROCHLORIDE
     Indication: PAIN
  2. GOLD [Concomitant]
     Active Substance: GOLD
  3. DICLOFENAC [Concomitant]
     Active Substance: DICLOFENAC
  4. ENBREL [Concomitant]
     Active Substance: ETANERCEPT
  5. ETANERCEPT [Suspect]
     Active Substance: ETANERCEPT
     Indication: RHEUMATOID ARTHRITIS
     Route: 058
  6. INDOMETACIN [Concomitant]
     Active Substance: INDOMETHACIN
  7. MELOXICAM. [Interacting]
     Active Substance: MELOXICAM
  8. PREDNISONE. [Concomitant]
     Active Substance: PREDNISONE
  9. METHOTREXATE. [Concomitant]
     Active Substance: METHOTREXATE
  10. PLAQUENIL [Concomitant]
     Active Substance: HYDROXYCHLOROQUINE SULFATE

REACTIONS (20)
  - Vomiting [Not Recovered/Not Resolved]
  - Dizziness [Not Recovered/Not Resolved]
  - Drug ineffective [Not Recovered/Not Resolved]
  - Neuralgia [Not Recovered/Not Resolved]
  - Rheumatoid arthritis [Not Recovered/Not Resolved]
  - Herpes zoster oticus [Not Recovered/Not Resolved]
  - Nausea [Not Recovered/Not Resolved]
  - Arthralgia [Not Recovered/Not Resolved]
  - Otitis media [Not Recovered/Not Resolved]
  - Pain [Not Recovered/Not Resolved]
  - Pain in jaw [Not Recovered/Not Resolved]
  - Pyrexia [Not Recovered/Not Resolved]
  - Musculoskeletal pain [Not Recovered/Not Resolved]
  - Productive cough [Not Recovered/Not Resolved]
  - Epistaxis [Not Recovered/Not Resolved]
  - Herpes zoster [Not Recovered/Not Resolved]
  - Pain in extremity [Not Recovered/Not Resolved]
  - Vertigo [Not Recovered/Not Resolved]
  - Fatigue [Not Recovered/Not Resolved]
  - Malaise [Not Recovered/Not Resolved]
